FAERS Safety Report 4432405-7 (Version None)
Quarter: 2004Q3

REPORT INFORMATION
  Report Type: 
  Country: None (occurrence: None)
  Receive Date: 20040820
  Receipt Date: 20040813
  Transmission Date: 20050211
  Serious: Yes (Hospitalization, Disabling)
  Sender: FDA-Public Use
  Company Number: 2004GB01856

PATIENT
  Age: 74 Year
  Sex: Female

DRUGS (4)
  1. NOLVADEX [Suspect]
     Indication: BREAST CANCER
     Dosage: 20 MG QD PO
     Route: 048
     Dates: start: 19980615, end: 20030728
  2. ENALAPRIL [Concomitant]
  3. GLICLAZIDE [Concomitant]
  4. METFORMIN HCL [Concomitant]

REACTIONS (3)
  - ACCIDENT [None]
  - FALL [None]
  - HIP FRACTURE [None]
